FAERS Safety Report 8871864 (Version 1)
Quarter: 2012Q4

REPORT INFORMATION
  Report Type: 
  Country: US (occurrence: US)
  Receive Date: 20121029
  Receipt Date: 20121029
  Transmission Date: 20130627
  Serious: No
  Sender: FDA-Public Use
  Company Number: US-B.I. PHARMACEUTICALS,INC./RIDGEFIELD-2012-BP-26254BP

PATIENT
  Age: 84 Year
  Sex: Male
  Weight: 82 kg

DRUGS (9)
  1. PRADAXA [Suspect]
     Indication: ATRIAL FIBRILLATION
     Dosage: 300 mg
     Route: 048
     Dates: start: 20121016, end: 20121019
  2. TOPROL [Concomitant]
     Indication: HYPERTENSION
     Dosage: 50 mg
     Route: 048
  3. ASPIRIN [Concomitant]
     Indication: CARDIAC DISORDER
     Dosage: 81 mg
     Route: 048
  4. LISINOPRIL [Concomitant]
     Indication: HYPERTENSION
     Dosage: 20 mg
     Route: 048
  5. CLONIDINE [Concomitant]
     Indication: HYPERTENSION
     Dosage: 0.2 mg
     Route: 048
  6. HCTZ [Concomitant]
     Indication: HYPERTENSION
  7. NORVASC [Concomitant]
     Indication: HYPERTENSION
     Dosage: 10 mg
     Route: 048
  8. LIPITOR [Concomitant]
     Indication: HYPERTENSION
     Dosage: 20 mg
     Route: 048
  9. ALLOPURINOL [Concomitant]
     Indication: NEPHROLITHIASIS
     Dosage: 100 mg
     Route: 048
     Dates: start: 2002

REACTIONS (4)
  - Abdominal pain upper [Recovered/Resolved]
  - Dyspepsia [Recovered/Resolved]
  - Hypophagia [Recovered/Resolved]
  - Flatulence [Recovered/Resolved]
